FAERS Safety Report 6204938-4 (Version None)
Quarter: 2009Q2

REPORT INFORMATION
  Report Type: 
  Country: None (occurrence: None)
  Receive Date: 20090526
  Receipt Date: 20090512
  Transmission Date: 20091009
  Serious: Yes (Life-Threatening, Hospitalization, Disabling)
  Sender: FDA-Public Use
  Company Number: 2009AL003441

PATIENT
  Age: 54 Year
  Sex: Male

DRUGS (1)
  1. DICLOFENAC SODIUM [Suspect]
     Indication: ANALGESIA
     Dosage: 50 MG;TID;PO
     Route: 048
     Dates: start: 20090422, end: 20090426

REACTIONS (1)
  - DUODENAL ULCER [None]
